FAERS Safety Report 5747518-7 (Version None)
Quarter: 2008Q2

REPORT INFORMATION
  Report Type: 
  Country: None (occurrence: None)
  Receive Date: 20080523
  Receipt Date: 20080516
  Transmission Date: 20081010
  Serious: Yes (Other)
  Sender: FDA-Public Use
  Company Number: BR-ASTRAZENECA-2008UW10237

PATIENT
  Age: 44 Year
  Sex: Male
  Weight: 113 kg

DRUGS (5)
  1. SYMBICORT [Suspect]
     Indication: CHRONIC OBSTRUCTIVE PULMONARY DISEASE
     Dosage: 320/9UG BID
     Route: 055
     Dates: end: 20070501
  2. ALENIA [Concomitant]
     Dates: start: 20070501
  3. OLANZAPINE [Concomitant]
     Indication: DEPRESSION
     Dates: end: 20080501
  4. DIAZEPAM [Concomitant]
  5. CLOMIPRAMINE HCL [Concomitant]

REACTIONS (9)
  - ASTHENIA [None]
  - DIABETES MELLITUS [None]
  - HUNGER [None]
  - HYPERGLYCAEMIA [None]
  - POLLAKIURIA [None]
  - SWELLING [None]
  - THIRST [None]
  - VISUAL DISTURBANCE [None]
  - WEIGHT INCREASED [None]
